FAERS Safety Report 4672466-3 (Version None)
Quarter: 2005Q2

REPORT INFORMATION
  Report Type: 
  Country: None (occurrence: None)
  Receive Date: 20050523
  Receipt Date: 20050506
  Transmission Date: 20051028
  Serious: Yes (Other)
  Sender: FDA-Public Use
  Company Number: TRP_0111_2005

PATIENT
  Age: 34 Year
  Sex: Male

DRUGS (4)
  1. RIBAVIRIN [Suspect]
     Indication: HEPATITIS C
     Dosage: 1000 MG QDAY PO
     Route: 048
     Dates: start: 20030701, end: 20040701
  2. PEGINTERFERON-ALFA2B [Suspect]
     Indication: HEPATITIS C
     Dosage: 1.5 MCG/KG QWK SC
     Route: 058
     Dates: start: 20030701, end: 20040701
  3. SERTRALINE HCL [Concomitant]
  4. BUPRENORPHINE [Concomitant]

REACTIONS (1)
  - PORPHYRIA NON-ACUTE [None]
